FAERS Safety Report 9896886 (Version 1)
Quarter: 2014Q1

REPORT INFORMATION
  Report Type: Spontaneous
  Country: IR (occurrence: IR)
  Receive Date: 20140214
  Receipt Date: 20140214
  Transmission Date: 20141002
  Serious: Yes (Hospitalization, Disabling, Other)
  Sender: FDA-Public Use
  Company Number: IR-PAR PHARMACEUTICAL, INC-2014SCPR008909

PATIENT
  Sex: 0

DRUGS (1)
  1. METRONIDAZOLE [Suspect]
     Indication: BLASTOCYSTIS INFECTION
     Dosage: 750 MG, TID
     Route: 048

REACTIONS (2)
  - Deafness neurosensory [Recovering/Resolving]
  - Pain in extremity [Unknown]
